FAERS Safety Report 4866646-1 (Version None)
Quarter: 2005Q4

REPORT INFORMATION
  Report Type: 
  Country: None (occurrence: None)
  Receive Date: 20051227
  Receipt Date: 20051214
  Transmission Date: 20060501
  Serious: Yes (Hospitalization)
  Sender: FDA-Public Use
  Company Number: FR-JNJFOC-20051204870

PATIENT
  Age: 75 Year
  Sex: Female

DRUGS (6)
  1. TOPALGIC [Suspect]
     Indication: HIP FRACTURE
     Route: 042
  2. AMLOR [Concomitant]
     Route: 065
  3. GINKOR [Concomitant]
     Route: 065
  4. GINKOR [Concomitant]
     Route: 065
  5. LOXEN [Concomitant]
     Route: 065
  6. PROPRANOLOL [Concomitant]

REACTIONS (2)
  - AGITATION [None]
  - DELIRIUM [None]
